FAERS Safety Report 16467602 (Version 1)
Quarter: 2019Q2

REPORT INFORMATION
  Report Type: Report from Study
  Country: DE (occurrence: DE)
  Receive Date: 20190624
  Receipt Date: 20190624
  Transmission Date: 20190711
  Serious: Yes (Hospitalization, Other)
  Sender: FDA-Public Use
  Company Number: DE-ROCHE-2324439

PATIENT
  Sex: Female
  Weight: 79 kg

DRUGS (7)
  1. RANIBIZUMAB. [Suspect]
     Active Substance: RANIBIZUMAB
     Dosage: 0.5 MG, 1X, (PRE-FILLED SYRINGE)
     Route: 031
     Dates: start: 20190401, end: 20190401
  2. RANIBIZUMAB. [Suspect]
     Active Substance: RANIBIZUMAB
     Indication: NEOVASCULAR AGE-RELATED MACULAR DEGENERATION
     Dosage: 0.5 MG, 1X, (PRE-FILLED SYRINGE)
     Route: 031
     Dates: start: 20180409
  3. RANIBIZUMAB. [Suspect]
     Active Substance: RANIBIZUMAB
     Dosage: 0.5 MG, 1X, (PRE-FILLED SYRINGE)
     Route: 031
     Dates: start: 20181029
  4. RANIBIZUMAB. [Suspect]
     Active Substance: RANIBIZUMAB
     Dosage: 0.5 MG, 1X, (PRE-FILLED SYRINGE)
     Route: 031
     Dates: start: 20181001
  5. RANIBIZUMAB. [Suspect]
     Active Substance: RANIBIZUMAB
     Dosage: 0.5 MG, 1X, (PRE-FILLED SYRINGE)
     Route: 031
     Dates: start: 20181126
  6. RANIBIZUMAB. [Suspect]
     Active Substance: RANIBIZUMAB
     Dosage: 0.5 MG, 1X, (PRE-FILLED SYRINGE)
     Route: 031
     Dates: start: 20180514
  7. RANIBIZUMAB. [Suspect]
     Active Substance: RANIBIZUMAB
     Dosage: 0.5 MG, 1X, (PRE-FILLED SYRINGE)
     Route: 031
     Dates: start: 20180611

REACTIONS (3)
  - Endophthalmitis [Recovered/Resolved]
  - Blindness [Unknown]
  - Eye pain [Unknown]

NARRATIVE: CASE EVENT DATE: 20190418
